FAERS Safety Report 6608364-5 (Version None)
Quarter: 2010Q1

REPORT INFORMATION
  Report Type: 
  Country: None (occurrence: None)
  Receive Date: 20100301
  Receipt Date: 20100224
  Transmission Date: 20100710
  Serious: Yes (Hospitalization)
  Sender: FDA-Public Use
  Company Number: US-SANOFI-AVENTIS-A03200904467

PATIENT
  Age: 74 Year
  Sex: Female
  Weight: 61.36 kg

DRUGS (15)
  1. DRONEDARONE [Suspect]
     Indication: ATRIAL FIBRILLATION
     Dosage: UNIT DOSE: 400 MG
     Route: 048
     Dates: start: 20090903, end: 20090918
  2. DRONEDARONE [Suspect]
     Indication: ATRIAL FLUTTER
     Dosage: UNIT DOSE: 400 MG
     Route: 048
     Dates: start: 20090903, end: 20090918
  3. MIRALAX [Concomitant]
     Indication: DRUG USE FOR UNKNOWN INDICATION
     Route: 065
  4. ASPIRIN [Concomitant]
     Indication: DRUG USE FOR UNKNOWN INDICATION
     Dosage: UNIT DOSE: 81 MG
     Route: 048
  5. CALCIUM [Concomitant]
     Indication: DRUG USE FOR UNKNOWN INDICATION
     Dosage: UNIT DOSE: 500 MG
     Route: 048
  6. CONVALLARIA MAJALIS/CRATAEGUS LAEVIGATA/PROXYPHYLLINE [Concomitant]
     Indication: DRUG USE FOR UNKNOWN INDICATION
     Route: 048
  7. LASIX [Concomitant]
     Indication: DRUG USE FOR UNKNOWN INDICATION
     Dosage: UNIT DOSE: 40 MG
     Route: 048
  8. THERAGRAN-M [Concomitant]
     Indication: DRUG USE FOR UNKNOWN INDICATION
     Dosage: UNIT DOSE: 1 DF
     Route: 048
  9. POTASSIUM [Concomitant]
     Indication: DRUG USE FOR UNKNOWN INDICATION
     Dosage: UNIT DOSE: 8 MEQ
     Route: 065
  10. TOPROL-XL [Concomitant]
     Indication: DRUG USE FOR UNKNOWN INDICATION
     Dosage: UNIT DOSE: 100 MG
     Route: 048
  11. LEVOTHYROXINE [Concomitant]
     Indication: DRUG USE FOR UNKNOWN INDICATION
     Dosage: UNIT DOSE: 125 MCG
     Route: 048
  12. VERELAN PM [Concomitant]
     Indication: DRUG USE FOR UNKNOWN INDICATION
     Dosage: UNIT DOSE: 300 MG
     Route: 048
  13. FOSAMAX [Concomitant]
     Indication: DRUG USE FOR UNKNOWN INDICATION
     Dosage: UNIT DOSE: 70 MG
     Route: 048
  14. AMITRIPTYLINE HCL [Concomitant]
     Indication: DRUG USE FOR UNKNOWN INDICATION
     Dosage: UNIT DOSE: 30 MG
     Route: 065
  15. COUMADIN [Concomitant]
     Indication: DRUG USE FOR UNKNOWN INDICATION
     Route: 065

REACTIONS (2)
  - CARDIAC FAILURE CONGESTIVE [None]
  - DYSPNOEA [None]
